FAERS Safety Report 23836185 (Version 3)
Quarter: 2024Q3

REPORT INFORMATION
  Report Type: Report from Study
  Country: FI (occurrence: FI)
  Receive Date: 20240509
  Receipt Date: 20240724
  Transmission Date: 20241017
  Serious: Yes (Other)
  Sender: MYLAN
  Company Number: FI-MYLANLABS-2024M1041336

PATIENT
  Age: 58 Year
  Sex: Male

DRUGS (15)
  1. CLOZAPINE [Suspect]
     Active Substance: CLOZAPINE
     Indication: Schizophrenia
     Dosage: 250 MILLIGRAM, QD (STOP DATE: 30-APR-2024)
     Route: 065
     Dates: start: 202404, end: 202404
  2. CLOZAPINE [Suspect]
     Active Substance: CLOZAPINE
     Dosage: 250 MILLIGRAM
     Route: 065
     Dates: start: 20240409, end: 20240503
  3. POLYETHYLENE GLYCOL 4000 [Concomitant]
     Active Substance: POLYETHYLENE GLYCOL 4000
     Dosage: 12 GRAM, BID (IN THE MORNING AND IN THE EVENING)
     Route: 065
  4. BISOPROLOL [Concomitant]
     Active Substance: BISOPROLOL\BISOPROLOL FUMARATE
     Dosage: 5 MILLIGRAM, QD (ONCE DAILY IN THE MORNING)
     Route: 065
  5. Simvastatin sanoswiss [Concomitant]
     Dosage: 20 MILLIGRAM, QD (ONCE DAILY IN THE EVENING)
     Route: 065
  6. CARBALAN [Concomitant]
     Dosage: UNK, BID (200G (CONTAINS 5 PERCENT CARBAMIDE) 1 TUBE (TWICE DAILY))
     Route: 065
  7. BETNOVATE SCALP APPLICATION [Concomitant]
     Dosage: 1 DOSAGE FORM, QD (ONE DOSE ONCE A DAY)
     Route: 065
  8. Panadol Forte [Concomitant]
     Dosage: 1000 MILLIGRAM, TID (THREE TIMES A DAY)
     Route: 065
  9. SYMBICORT [Concomitant]
     Active Substance: BUDESONIDE\FORMOTEROL FUMARATE DIHYDRATE
     Dosage: UNK, BID (TWICE DAILY)
     Route: 065
  10. MONTELUKAST SODIUM [Concomitant]
     Active Substance: MONTELUKAST SODIUM
     Dosage: 10 MILLIGRAM, QD (ONCE DAILY IN THE EVENING)
     Route: 065
  11. PANTOPRAZOLE SODIUM [Concomitant]
     Active Substance: PANTOPRAZOLE SODIUM
     Dosage: 40 MILLIGRAM, PRN (ONCE A DAY WHEN NEEDED)
     Route: 065
  12. SODIUM PICOSULFATE [Concomitant]
     Active Substance: SODIUM PICOSULFATE
     Dosage: 20 DROP, PRN (ONCE DAILY WHEN NEEDED)
     Route: 065
  13. BETAMETHASONE VALERATE [Concomitant]
     Active Substance: BETAMETHASONE VALERATE
     Dosage: UNK, PRN (ONCE DAILY WHEN NEEDED)
     Route: 065
  14. IBUPROFEN [Concomitant]
     Active Substance: IBUPROFEN
     Dosage: UNK, PRN (600 MG 1-3 TIME A DAY WHEN NEEDED)
     Route: 065
  15. EBASTINE [Concomitant]
     Active Substance: EBASTINE
     Dosage: 5 MILLIGRAM, PRN (ONCE A DAY WHEN NEEDED)
     Route: 065

REACTIONS (9)
  - Eosinophilia [Not Recovered/Not Resolved]
  - C-reactive protein increased [Recovered/Resolved]
  - Eczema [Recovered/Resolved]
  - Acarodermatitis [Unknown]
  - Oropharyngeal pain [Recovered/Resolved]
  - White blood cell count increased [Unknown]
  - Febrile infection [Recovered/Resolved]
  - Pyrexia [Recovered/Resolved]
  - Off label use [Recovered/Resolved]

NARRATIVE: CASE EVENT DATE: 20240401
